FAERS Safety Report 6844973-6 (Version None)
Quarter: 2010Q3

REPORT INFORMATION
  Report Type: 
  Country: None (occurrence: None)
  Receive Date: 20100713
  Receipt Date: 20100629
  Transmission Date: 20110219
  Serious: Yes (Hospitalization)
  Sender: FDA-Public Use
  Company Number: RB-12622-2010

PATIENT
  Sex: Male

DRUGS (1)
  1. SUBOXONE [Suspect]
     Indication: DRUG DEPENDENCE
     Dosage: (8 MG BID SUBLINGUAL)
     Route: 060
     Dates: start: 20080701, end: 20090301

REACTIONS (4)
  - BACK PAIN [None]
  - INTERVERTEBRAL DISC DISORDER [None]
  - POSTOPERATIVE THROMBOSIS [None]
  - SPINAL DISORDER [None]
